FAERS Safety Report 6966361-4 (Version None)
Quarter: 2010Q3

REPORT INFORMATION
  Report Type: 
  Country: None (occurrence: None)
  Receive Date: 20100903
  Receipt Date: 20100830
  Transmission Date: 20110219
  Serious: Yes (Hospitalization)
  Sender: FDA-Public Use
  Company Number: PHHO2010DE13125

PATIENT
  Sex: Female
  Weight: 93 kg

DRUGS (4)
  1. MYFORTIC [Suspect]
     Indication: RENAL TRANSPLANT
     Dosage: 360 3-0-3
     Route: 048
     Dates: start: 20100829
  2. SANDIMMUNE [Suspect]
     Indication: RENAL TRANSPLANT
  3. NO TREATMENT RECEIVED NOMED [Suspect]
     Indication: RENAL TRANSPLANT
  4. URBASON [Concomitant]
     Indication: RENAL TRANSPLANT
     Dosage: 4-0-0
     Route: 048
     Dates: start: 20100829

REACTIONS (3)
  - RETROPERITONEAL HAEMATOMA [None]
  - SPINAL CORD HERNIATION [None]
  - SURGERY [None]
